FAERS Safety Report 5158617-5 (Version None)
Quarter: 2006Q4

REPORT INFORMATION
  Report Type: 
  Country: None (occurrence: None)
  Receive Date: 20061128
  Receipt Date: 20061121
  Transmission Date: 20070319
  Serious: Yes (Other)
  Sender: FDA-Public Use
  Company Number: IE-AVENTIS-200621980GDDC

PATIENT
  Sex: Male

DRUGS (2)
  1. LANTUS [Suspect]
     Indication: DIABETES MELLITUS
     Route: 058
  2. NOVORAPID [Suspect]
     Indication: DIABETES MELLITUS
     Route: 058

REACTIONS (2)
  - CONDITION AGGRAVATED [None]
  - VISUAL DISTURBANCE [None]
